FAERS Safety Report 18155230 (Version 1)
Quarter: 2020Q3

REPORT INFORMATION
  Report Type: Spontaneous
  Country: US (occurrence: US)
  Receive Date: 20200817
  Receipt Date: 20200817
  Transmission Date: 20201103
  Serious: No
  Sender: FDA-Public Use
  Company Number: US-ALLERGAN-2013669US

PATIENT
  Age: 65 Year
  Sex: Male

DRUGS (5)
  1. TESTOSTERONE 0.075MG PCH [Suspect]
     Active Substance: TESTOSTERONE
     Indication: BLOOD TESTOSTERONE DECREASED
     Dosage: 1 MG, Q2WEEKS
  2. TESTESTORONE CREAM [Concomitant]
     Indication: BLOOD TESTOSTERONE DECREASED
     Route: 061
  3. ZOLOFT [Concomitant]
     Active Substance: SERTRALINE HYDROCHLORIDE
     Indication: DEPRESSION
     Dosage: 50 MG
     Route: 048
  4. TESTESTORONE BULLETS [Concomitant]
  5. SUPPLEMENTS [Suspect]
     Active Substance: UNSPECIFIED INGREDIENT
     Dosage: UNK
     Route: 065

REACTIONS (1)
  - Blood count abnormal [Unknown]
